FAERS Safety Report 8031065-6 (Version None)
Quarter: 2012Q1

REPORT INFORMATION
  Report Type: 
  Country: None (occurrence: None)
  Receive Date: 20120109
  Receipt Date: 20120103
  Transmission Date: 20120608
  Serious: Yes (Other)
  Sender: FDA-Public Use
  Company Number: BR-PFIZER INC-2010150399

PATIENT
  Age: 30 Year
  Sex: Female

DRUGS (4)
  1. GEODON [Suspect]
     Indication: SCHIZOAFFECTIVE DISORDER
     Dosage: 40 MG, 1X/DAY
     Route: 048
     Dates: start: 20060101
  2. GEODON [Suspect]
     Dosage: 80 MG, 1X/DAY
     Route: 048
  3. GEODON [Suspect]
     Dosage: 40 MG, 1X/DAY
     Route: 048
  4. AKINETON [Suspect]
     Dosage: UNK

REACTIONS (8)
  - AUTOIMMUNE THYROIDITIS [None]
  - HYPOTHYROIDISM [None]
  - MALAISE [None]
  - VITAMIN D DECREASED [None]
  - TREMOR [None]
  - SCHIZOAFFECTIVE DISORDER [None]
  - DYSPHAGIA [None]
  - PARKINSON'S DISEASE [None]
